FAERS Safety Report 7996068-6 (Version None)
Quarter: 2011Q4

REPORT INFORMATION
  Report Type: 
  Country: None (occurrence: None)
  Receive Date: 20111220
  Receipt Date: 20111209
  Transmission Date: 20120403
  Serious: Yes (Other)
  Sender: FDA-Public Use
  Company Number: PHHY2011JP105391

PATIENT
  Age: 46 Year
  Sex: Female

DRUGS (2)
  1. CYCLOSPORINE [Suspect]
     Indication: APLASTIC ANAEMIA
     Dosage: 5MG/KG/DAY
     Route: 042
     Dates: start: 20110420, end: 20110601
  2. THYMOGLOBULIN [Concomitant]
     Indication: APLASTIC ANAEMIA
     Dosage: 3.5 MG/KG, UNK
     Dates: start: 20110420

REACTIONS (9)
  - PAPULE [None]
  - GASTRITIS EROSIVE [None]
  - EPSTEIN-BARR VIRUS INFECTION [None]
  - HERPES VIRUS INFECTION [None]
  - RASH [None]
  - PANCYTOPENIA [None]
  - GASTRIC ULCER [None]
  - CYTOMEGALOVIRUS INFECTION [None]
  - PYREXIA [None]
